FAERS Safety Report 6283670-5 (Version None)
Quarter: 2009Q3

REPORT INFORMATION
  Report Type: 
  Country: None (occurrence: None)
  Receive Date: 20090724
  Receipt Date: 20090515
  Transmission Date: 20100115
  Serious: No
  Sender: FDA-Public Use
  Company Number: US-ALEXION-A200900403

PATIENT
  Sex: Female

DRUGS (15)
  1. SOLIRIS [Suspect]
     Indication: PAROXYSMAL NOCTURNAL HAEMOGLOBINURIA
     Dosage: 600 MG, QW
     Route: 042
     Dates: start: 20070524, end: 20070613
  2. SOLIRIS [Suspect]
     Dosage: 900 MG, Q2W
     Route: 042
     Dates: start: 20070620
  3. TRAZODONE [Concomitant]
     Dosage: 50 MG, HS
     Route: 048
  4. LASIX [Concomitant]
     Indication: FLUID RETENTION
     Dosage: UNK
     Route: 048
  5. DANAZOL [Concomitant]
  6. PROCRIT                            /00909301/ [Concomitant]
     Indication: PAROXYSMAL NOCTURNAL HAEMOGLOBINURIA
     Dosage: 400 UNK, QW
     Route: 030
  7. PROCRIT                            /00909301/ [Concomitant]
     Indication: FATIGUE
  8. FOSAMAX [Concomitant]
     Dosage: UNK
     Route: 048
  9. CELEXA [Concomitant]
     Dosage: UNK
     Route: 048
  10. CALCIUM [Concomitant]
     Dosage: UNK
     Route: 048
  11. CLARITIN                           /00917501/ [Concomitant]
     Dosage: UNK
     Route: 048
  12. METHADONE HCL [Concomitant]
     Dosage: UNK
     Route: 048
  13. PRILOSEC [Concomitant]
     Dosage: UNK
     Route: 048
  14. COUMADIN [Concomitant]
     Dosage: UNK
     Route: 048
  15. FOLIC ACID [Concomitant]
     Dosage: UNK
     Route: 048

REACTIONS (4)
  - DYSMENORRHOEA [None]
  - FATIGUE [None]
  - FLUID RETENTION [None]
  - SOMNOLENCE [None]
